FAERS Safety Report 15226429 (Version 1)
Quarter: 2018Q3

REPORT INFORMATION
  Report Type: Spontaneous
  Country: DE (occurrence: DE)
  Receive Date: 20180801
  Receipt Date: 20180801
  Transmission Date: 20181010
  Serious: Yes (Hospitalization)
  Sender: FDA-Public Use
  Company Number: DE-BAYER-2018-089114

PATIENT
  Age: 30 Year
  Sex: Female

DRUGS (1)
  1. JAYDESS [Suspect]
     Active Substance: LEVONORGESTREL
     Indication: CONTRACEPTION
     Dosage: 14 MCG/24HR, CONT
     Route: 015
     Dates: start: 20160503, end: 20180501

REACTIONS (9)
  - Appendicitis [Recovered/Resolved]
  - Drug ineffective [None]
  - Salpingo-oophoritis [Recovered/Resolved]
  - Ovarian cyst ruptured [Recovered/Resolved]
  - Ectopic pregnancy with contraceptive device [Recovered/Resolved]
  - Haemorrhagic ovarian cyst [Recovered/Resolved]
  - Peritoneal haemorrhage [Recovered/Resolved]
  - Peritonitis [Recovered/Resolved]
  - Pelvic adhesions [Recovered/Resolved]

NARRATIVE: CASE EVENT DATE: 20180501
